FAERS Safety Report 13798053 (Version 2)
Quarter: 2017Q4

REPORT INFORMATION
  Report Type: Spontaneous
  Country: US (occurrence: US)
  Receive Date: 20170727
  Receipt Date: 20171005
  Transmission Date: 20180320
  Serious: No
  Sender: FDA-Public Use
  Company Number: US-PFIZER INC-2017322770

PATIENT
  Age: 66 Year
  Sex: Female
  Weight: 72.57 kg

DRUGS (2)
  1. IBRANCE [Suspect]
     Active Substance: PALBOCICLIB
     Dosage: 100 MG, UNK
  2. IBRANCE [Suspect]
     Active Substance: PALBOCICLIB
     Indication: BREAST CANCER METASTATIC
     Dosage: 75 MG, CYCLIC (DAYS 1-21 Q28 DAYS)
     Route: 048
     Dates: start: 201606

REACTIONS (11)
  - Asthenia [Unknown]
  - Skin infection [Unknown]
  - Myalgia [Unknown]
  - Pruritus [Unknown]
  - Lip swelling [Unknown]
  - Dry skin [Unknown]
  - White blood cell count decreased [Unknown]
  - Dizziness [Unknown]
  - Chills [Unknown]
  - Oropharyngeal pain [Unknown]
  - Swelling face [Unknown]
